FAERS Safety Report 5140441-0 (Version None)
Quarter: 2006Q4

REPORT INFORMATION
  Report Type: 
  Country: None (occurrence: None)
  Receive Date: 20061025
  Receipt Date: 20061020
  Transmission Date: 20070319
  Serious: Yes (Hospitalization)
  Sender: FDA-Public Use
  Company Number: 224228

PATIENT
  Age: 72 Year
  Sex: Female

DRUGS (2)
  1. HERCEPTIN [Suspect]
     Indication: BREAST CANCER METASTATIC
     Dosage: INTRAVENOUS
     Route: 042
  2. TAXOL [Concomitant]

REACTIONS (4)
  - ACUTE PULMONARY OEDEMA [None]
  - CARDIOMYOPATHY [None]
  - DRUG INTOLERANCE [None]
  - EJECTION FRACTION DECREASED [None]
